FAERS Safety Report 25689825 (Version 2)
Quarter: 2025Q3

REPORT INFORMATION
  Report Type: Report from Study
  Country: EU (occurrence: EU)
  Receive Date: 20250818
  Receipt Date: 20250924
  Transmission Date: 20251021
  Serious: Yes (Death)
  Sender: MYLAN
  Company Number: EU-MYLANLABS-2025M1069373

PATIENT
  Age: 64 Year
  Sex: Female

DRUGS (4)
  1. GLATIRAMER ACETATE [Suspect]
     Active Substance: GLATIRAMER ACETATE
     Indication: Multiple sclerosis
     Dosage: UNK, 3XW (3.00 X PER WEEK)
     Dates: start: 20190613
  2. GLATIRAMER ACETATE [Suspect]
     Active Substance: GLATIRAMER ACETATE
     Dosage: UNK, 3XW (3.00 X PER WEEK)
     Route: 058
     Dates: start: 20190613
  3. GLATIRAMER ACETATE [Suspect]
     Active Substance: GLATIRAMER ACETATE
     Dosage: UNK, 3XW (3.00 X PER WEEK)
     Route: 058
     Dates: start: 20190613
  4. GLATIRAMER ACETATE [Suspect]
     Active Substance: GLATIRAMER ACETATE
     Dosage: UNK, 3XW (3.00 X PER WEEK)
     Dates: start: 20190613

REACTIONS (1)
  - Death [Fatal]

NARRATIVE: CASE EVENT DATE: 20250804
